FAERS Safety Report 6022451-4 (Version None)
Quarter: 2008Q4

REPORT INFORMATION
  Report Type: 
  Country: None (occurrence: None)
  Receive Date: 20081221
  Receipt Date: 20081221
  Transmission Date: 20090506
  Serious: Yes (Life-Threatening, Hospitalization, Other)
  Sender: FDA-Public Use
  Company Number: None

PATIENT
  Age: 22 Year
  Sex: Male
  Weight: 59.8748 kg

DRUGS (2)
  1. RISPERIDONE [Suspect]
     Indication: SCHIZOPHRENIA
     Dosage: 5 MILI GRAMS TWICE A DAY PO
     Route: 048
     Dates: start: 20071223, end: 20080117
  2. HALOPERIDOL [Suspect]
     Indication: AGGRESSION
     Dosage: 5 MILI GRAMS ONE TIME IV
     Route: 042
     Dates: start: 20071222, end: 20071222

REACTIONS (12)
  - AGGRESSION [None]
  - CONFUSIONAL STATE [None]
  - DELUSION [None]
  - EMOTIONAL DISORDER [None]
  - HALLUCINATION [None]
  - IMMUNE SYSTEM DISORDER [None]
  - IRRITABILITY [None]
  - PARANOIA [None]
  - REFUSAL OF TREATMENT BY PATIENT [None]
  - SCHIZOPHRENIA [None]
  - SUICIDAL IDEATION [None]
  - WHITE BLOOD CELL COUNT DECREASED [None]
